FAERS Safety Report 22585416 (Version 2)
Quarter: 2023Q2

REPORT INFORMATION
  Report Type: Report from Study
  Country: US (occurrence: US)
  Receive Date: 20230610
  Receipt Date: 20230612
  Transmission Date: 20230721
  Serious: No
  Sender: FDA-Public Use
  Company Number: US-002147023-NVSC2023US130213

PATIENT
  Sex: Male

DRUGS (1)
  1. OMNITROPE [Suspect]
     Active Substance: SOMATROPIN
     Indication: Product used for unknown indication
     Dosage: 3.3 MG (2.5 MG SC FOR 6 DAYS AND THEN 3.3MG FOR 6 DAYS THEN 4 MG FOR 6 DAYS THEN 5 MG FOR 6 DAYS THE
     Route: 058
     Dates: start: 20230601

REACTIONS (2)
  - Injection site pain [Unknown]
  - Incorrect dose administered [Unknown]
